FAERS Safety Report 5090164-1 (Version None)
Quarter: 2006Q3

REPORT INFORMATION
  Report Type: 
  Country: None (occurrence: None)
  Receive Date: 20060823
  Receipt Date: 20060810
  Transmission Date: 20061208
  Serious: Yes (Death, Other)
  Sender: FDA-Public Use
  Company Number: 2006098457

PATIENT
  Age: 74 Year
  Sex: Female
  Weight: 52 kg

DRUGS (3)
  1. ZYVOX [Suspect]
     Indication: ENTEROCOCCAL INFECTION
     Dosage: 1500 MG (500 MG,  3 IN 1 D), ORAL
     Route: 048
     Dates: start: 20060801
  2. ASPIRIN [Concomitant]
  3. BETA BLOCKER AGENTS (BETA BLOCKING AGENTS) [Concomitant]

REACTIONS (9)
  - ABDOMINAL PAIN UPPER [None]
  - ACIDOSIS [None]
  - ARRHYTHMIA [None]
  - HAEMATOCRIT DECREASED [None]
  - HAEMOGLOBIN DECREASED [None]
  - LACTIC ACIDOSIS [None]
  - MALAISE [None]
  - PLATELET COUNT DECREASED [None]
  - WHITE BLOOD CELL COUNT DECREASED [None]
